FAERS Safety Report 19987343 (Version 1)
Quarter: 2021Q4

REPORT INFORMATION
  Report Type: Other
  Country: NO (occurrence: NO)
  Receive Date: 20211023
  Receipt Date: 20211023
  Transmission Date: 20220303
  Serious: Yes (Hospitalization)
  Sender: FDA-Public Use
  Company Number: NO-CELLTRION INC.-2021NO014161

PATIENT

DRUGS (5)
  1. INFLIXIMAB [Suspect]
     Active Substance: INFLIXIMAB
     Indication: Crohn^s disease
     Dosage: UNK
     Dates: start: 20210804
  2. NYCOPLUS VITAMIN D3 [Concomitant]
     Indication: Vitamin supplementation
     Dosage: 2 CAPSULES EVERY MORNING.
     Route: 048
  3. ACETAMINOPHEN [Concomitant]
     Active Substance: ACETAMINOPHEN
     Indication: Analgesic therapy
     Dosage: 1 TABLET UP TO 3 TIMES A DAY. THE PATIENT SHOULD USE AS LITTLE AS POSSIBLE DUE TO INCREASED HEPATIC
     Route: 048
  4. QUESTRAN [Concomitant]
     Active Substance: CHOLESTYRAMINE
     Indication: Diarrhoea
     Dosage: 4 GRAM
     Route: 048
  5. VITAMIN B12 [Concomitant]
     Active Substance: CYANOCOBALAMIN
     Indication: Vitamin B12 deficiency
     Dosage: 1 ML EVERY OTHER DAY FOR A TOTAL OF 5 TIMES, THEN 1 ML EVERY 3 MONTHS.
     Route: 030

REACTIONS (5)
  - Joint stiffness [Recovering/Resolving]
  - Joint stiffness [Recovering/Resolving]
  - Pain in extremity [Recovering/Resolving]
  - Pyrexia [Recovering/Resolving]
  - Serum sickness [Recovering/Resolving]

NARRATIVE: CASE EVENT DATE: 20210815
